FAERS Safety Report 20475509 (Version 1)
Quarter: 2022Q1

REPORT INFORMATION
  Report Type: Spontaneous
  Country: US (occurrence: None)
  Receive Date: 20220214
  Receipt Date: 20220214
  Transmission Date: 20220423
  Serious: Yes (Hospitalization)
  Sender: FDA-Public Use
  Company Number: None

PATIENT
  Age: 87 Year
  Sex: Female

DRUGS (1)
  1. AFINITOR [Suspect]
     Active Substance: EVEROLIMUS
     Dosage: FREQUENCY : DAILY;?
     Route: 048

REACTIONS (6)
  - Fall [None]
  - Haemoglobin decreased [None]
  - Pharyngeal haemorrhage [None]
  - Pulmonary haemorrhage [None]
  - Epistaxis [None]
  - Haemoptysis [None]

NARRATIVE: CASE EVENT DATE: 20220123
